FAERS Safety Report 4707651-5 (Version None)
Quarter: 2005Q3

REPORT INFORMATION
  Report Type: 
  Country: None (occurrence: None)
  Receive Date: 20050705
  Receipt Date: 20050620
  Transmission Date: 20060218
  Serious: Yes (Life-Threatening, Hospitalization)
  Sender: FDA-Public Use
  Company Number: S05-GER-01551-01

PATIENT
  Age: 61 Year
  Sex: Male

DRUGS (4)
  1. CITALOPRAM HYDROBROMIDE [Suspect]
     Indication: DEPRESSION
     Dosage: 30 MG QD PO
     Route: 048
     Dates: end: 20050413
  2. XYPREXA                 (OLANZAPINE) [Concomitant]
  3. TRIAMTERENE AND HYDROCHLOROTHIAZIDE [Concomitant]
  4. METOHEXAL                  (METOPROLOL TARTRATE) [Concomitant]

REACTIONS (1)
  - VENTRICULAR TACHYCARDIA [None]
